FAERS Safety Report 17247581 (Version 1)
Quarter: 2019Q4

REPORT INFORMATION
  Report Type: Spontaneous
  Country: US (occurrence: US)
  Receive Date: 20191213
  Receipt Date: 20191213
  Transmission Date: 20200122
  Serious: Yes (Death)
  Sender: FDA-Public Use
  Company Number: None

PATIENT
  Age: 82 Year
  Sex: Female

DRUGS (3)
  1. AMIKACIN 500MG/2ML [Suspect]
     Active Substance: AMIKACIN
     Indication: BRONCHIECTASIS
     Dosage: ?          OTHER DOSE:500MG/2ML;?
     Route: 055
     Dates: start: 201912, end: 20191201
  2. AMIKACIN 500MG/2ML [Suspect]
     Active Substance: AMIKACIN
     Indication: RESPIRATORY DISORDER
     Dosage: ?          OTHER DOSE:500MG/2ML;?
     Route: 055
     Dates: start: 201912, end: 20191201
  3. SODIUM CHLORIDE. [Concomitant]
     Active Substance: SODIUM CHLORIDE

REACTIONS (1)
  - Death [None]

NARRATIVE: CASE EVENT DATE: 20191201
